FAERS Safety Report 8453034-4 (Version None)
Quarter: 2012Q2

REPORT INFORMATION
  Report Type: 
  Country: None (occurrence: None)
  Receive Date: 20120620
  Receipt Date: 20120504
  Transmission Date: 20120825
  Serious: No
  Sender: FDA-Public Use
  Company Number: US-VERTEX PHARMACEUTICALS INC.-AE-2012-006518

PATIENT
  Sex: Male
  Weight: 81.72 kg

DRUGS (8)
  1. PROZAC [Concomitant]
  2. PEGASYS [Concomitant]
     Indication: HEPATITIS C
     Dates: start: 20120428
  3. INCIVEK [Suspect]
     Indication: HEPATITIS C
     Route: 048
     Dates: start: 20120428
  4. RIBAVIRIN [Concomitant]
     Indication: HEPATITIS C
     Dates: start: 20120428
  5. NEURONTIN [Concomitant]
  6. AMBIEN [Concomitant]
  7. LISINOPRIL [Concomitant]
  8. ABILIFY [Concomitant]

REACTIONS (3)
  - BONE PAIN [None]
  - HEADACHE [None]
  - NAUSEA [None]
